FAERS Safety Report 10388808 (Version 1)
Quarter: 2014Q1

REPORT INFORMATION
  Report Type: Spontaneous
  Country: US (occurrence: None)
  Receive Date: 20140306
  Receipt Date: 20140306
  Transmission Date: 20141002
  Serious: Yes (Other)
  Sender: FDA-Public Use
  Company Number: 163-21880-13104237

PATIENT
  Age: 69 Year
  Sex: Female

DRUGS (11)
  1. REVLIMID (LENALIDOMIDE) (15 MILLIGRAM, CAPSULES) [Suspect]
     Indication: PLASMA CELL MYELOMA
     Dosage: 15MG, 21 IN 28 D, PO
     Route: 048
     Dates: start: 20130730
  2. ACULAR (KETOROLAC TROMETHAMINE) (SOLUTION) [Concomitant]
  3. TYLENOL 8HR (PARACETAMOL) (TABLETS) [Concomitant]
  4. LISINOPRIL (TABLETS) (LISINOPRIL) [Concomitant]
  5. ASPIRIN (ACETYLSALICYLIC ACID) (CHEWABLE TABLET) [Concomitant]
  6. GLUCOSAMINE (CAPSULES) [Concomitant]
  7. DEXAMETHASONE (4 MILLIGRAM, TABLETS) [Concomitant]
  8. MULTI 50 + FOR HER (VITAMINS) (CAPSULES) [Concomitant]
  9. METOPROLOL ER (TABLETS) [Concomitant]
  10. DILTIAZEM (CAPSULES) [Concomitant]
  11. TRAMADOL HCL (TABLETS) [Concomitant]

REACTIONS (1)
  - White blood cell count decreased [None]
